FAERS Safety Report 5213195-7 (Version None)
Quarter: 2007Q1

REPORT INFORMATION
  Report Type: 
  Country: None (occurrence: None)
  Receive Date: 20070119
  Receipt Date: 20070108
  Transmission Date: 20070707
  Serious: Yes (Hospitalization)
  Sender: FDA-Public Use
  Company Number: FR-GLAXOSMITHKLINE-B0453966A

PATIENT
  Age: 65 Year
  Sex: Male

DRUGS (7)
  1. PAROXETINE HCL [Suspect]
     Dosage: 10MG PER DAY
     Route: 048
     Dates: end: 20061214
  2. DAFALGAN [Suspect]
     Dosage: 3G PER DAY
     Route: 048
     Dates: end: 20061213
  3. INIPOMP [Suspect]
     Dosage: 20MG PER DAY
     Route: 065
     Dates: end: 20061213
  4. PERINDOPRIL ERBUMINE [Concomitant]
     Dosage: 4MG PER DAY
     Route: 048
  5. ZOLPIDEM TARTRATE [Concomitant]
     Dosage: 1UNIT PER DAY
     Route: 065
  6. BROMAZEPAM [Concomitant]
     Dosage: 1.5MG PER DAY
     Route: 065
  7. TRIMETAZIDINE [Concomitant]
     Dosage: 3UNIT PER DAY
     Route: 065

REACTIONS (10)
  - ABDOMINAL PAIN [None]
  - CHOLELITHIASIS [None]
  - FAECES DISCOLOURED [None]
  - HEPATITIS [None]
  - HIATUS HERNIA [None]
  - LYMPHOPENIA [None]
  - MICROLITHIASIS [None]
  - OCULAR ICTERUS [None]
  - SERUM FERRITIN INCREASED [None]
  - WEIGHT DECREASED [None]
